FAERS Safety Report 8362267-7 (Version None)
Quarter: 2012Q2

REPORT INFORMATION
  Report Type: 
  Country: None (occurrence: None)
  Receive Date: 20120515
  Receipt Date: 20120504
  Transmission Date: 20120825
  Serious: Yes (Hospitalization)
  Sender: FDA-Public Use
  Company Number: DE-ELI_LILLY_AND_COMPANY-DE201205001835

PATIENT
  Age: 75 Year
  Sex: Female

DRUGS (4)
  1. ACTONEL [Concomitant]
     Dosage: UNK, WEEKLY (1/W)
  2. BEROTEC [Concomitant]
  3. CALCIUM W/VITAMIN D NOS [Concomitant]
     Dosage: UNK, QD
  4. FORTEO [Suspect]
     Indication: OSTEOPOROSIS
     Dosage: UNK, QD
     Route: 058
     Dates: start: 20101117

REACTIONS (1)
  - ASTHMA [None]
